FAERS Safety Report 4571196-6 (Version None)
Quarter: 2005Q1

REPORT INFORMATION
  Report Type: 
  Country: None (occurrence: None)
  Receive Date: 20050202
  Receipt Date: 20050117
  Transmission Date: 20050727
  Serious: Yes (Hospitalization)
  Sender: FDA-Public Use
  Company Number: 9821

PATIENT
  Age: 38 Year
  Sex: Male

DRUGS (4)
  1. METHOTREXATE [Suspect]
     Indication: PSORIASIS
     Dosage: 10 MG WEEKLY, PO
     Route: 048
     Dates: end: 20041220
  2. ROFECOXIB [Concomitant]
  3. BETAMETHASONE [Concomitant]
  4. LIGNOCAINE/CHLORBUTOL/CETRIMIDE/ALCLOXA [Concomitant]

REACTIONS (6)
  - ABDOMINAL PAIN LOWER [None]
  - COLITIS ISCHAEMIC [None]
  - HAEMATURIA [None]
  - MUCOSAL INFLAMMATION [None]
  - RECTAL HAEMORRHAGE [None]
  - VOMITING [None]
